FAERS Safety Report 4439540-8 (Version None)
Quarter: 2004Q3

REPORT INFORMATION
  Report Type: 
  Country: None (occurrence: None)
  Receive Date: 20040830
  Receipt Date: 20040820
  Transmission Date: 20050211
  Serious: Yes (Disabling)
  Sender: FDA-Public Use
  Company Number: 2004PK01412

PATIENT
  Age: 64 Year
  Sex: Female
  Weight: 60 kg

DRUGS (1)
  1. NEXIUM [Suspect]
     Indication: VOMITING
     Dosage: 40 MG DAILY PO
     Route: 048
     Dates: start: 20030401

REACTIONS (1)
  - VISION BLURRED [None]
